FAERS Safety Report 9131545 (Version 1)
Quarter: 2013Q1

REPORT INFORMATION
  Report Type: Spontaneous
  Country: US (occurrence: US)
  Receive Date: 20130301
  Receipt Date: 20130301
  Transmission Date: 20140127
  Serious: Yes (Other)
  Sender: FDA-Public Use
  Company Number: US-JNJFOC-20130212943

PATIENT
  Age: 44 Year
  Sex: Female

DRUGS (6)
  1. REMICADE [Suspect]
     Indication: RHEUMATOID ARTHRITIS
     Route: 042
     Dates: start: 20130130
  2. REMICADE [Suspect]
     Indication: RHEUMATOID ARTHRITIS
     Route: 042
     Dates: start: 20121214
  3. REMICADE [Suspect]
     Indication: RHEUMATOID ARTHRITIS
     Route: 042
     Dates: start: 20121114
  4. REMICADE [Suspect]
     Indication: RHEUMATOID ARTHRITIS
     Route: 042
     Dates: start: 20121031
  5. BENADRYL [Concomitant]
     Indication: PREMEDICATION
     Route: 065
  6. TYLENOL [Concomitant]
     Indication: PREMEDICATION
     Route: 065

REACTIONS (7)
  - Haemorrhoids [Recovered/Resolved]
  - Infusion related reaction [Not Recovered/Not Resolved]
  - Erythema [Not Recovered/Not Resolved]
  - Muscle tightness [Not Recovered/Not Resolved]
  - Chest discomfort [Not Recovered/Not Resolved]
  - Muscle spasms [Not Recovered/Not Resolved]
  - Gastrointestinal infection [Recovered/Resolved]
